FAERS Safety Report 5237930-7 (Version None)
Quarter: 2007Q1

REPORT INFORMATION
  Report Type: 
  Country: None (occurrence: None)
  Receive Date: 20070209
  Receipt Date: 20061227
  Transmission Date: 20070707
  Serious: Yes (Death, Disabling)
  Sender: FDA-Public Use
  Company Number: 2007SP002369

PATIENT
  Age: 53 Year
  Sex: Male

DRUGS (22)
  1. RINDERON (BETAMETHASONE) (BETAMETHASONE) [Suspect]
     Indication: METASTASES TO LIVER
     Dosage: 1 MG; QD; PO
     Route: 048
     Dates: start: 20051216, end: 20060213
  2. RINDERON (BETAMETHASONE) (BETAMETHASONE) [Suspect]
     Indication: METASTASES TO LYMPH NODES
     Dosage: 1 MG; QD; PO
     Route: 048
     Dates: start: 20051216, end: 20060213
  3. RINDERON (BETAMETHASONE) (BETAMETHASONE) [Suspect]
     Indication: METASTASES TO RETROPERITONEUM
     Dosage: 1 MG; QD; PO
     Route: 048
     Dates: start: 20051216, end: 20060213
  4. RINDERON (BETAMETHASONE) (BETAMETHASONE) [Suspect]
     Indication: PANCREATIC CARCINOMA
     Dosage: 1 MG; QD; PO
     Route: 048
     Dates: start: 20051216, end: 20060213
  5. OXYCONTIN (CON.) [Concomitant]
  6. NOVAMIN (CON.) [Concomitant]
  7. MAGNESIUM OXIDE (CON.) [Concomitant]
  8. HYPEN (CON.) [Concomitant]
  9. LOXONIN (CON.) [Concomitant]
  10. EXCELASE (CON.) [Concomitant]
  11. OMEPRAL (CON.) [Concomitant]
  12. LAC-B (CON.) [Concomitant]
  13. OPSO (CON.) [Concomitant]
  14. ANPEC (CON.) [Concomitant]
  15. FORSENID (CON.) [Concomitant]
  16. FENTANEST (CON.) [Concomitant]
  17. DUROTEP (CON.) [Concomitant]
  18. SOLITA-T NO. 3 (CON.) [Concomitant]
  19. LACTEC (CON.) [Concomitant]
  20. VEEN-D (CON.) [Concomitant]
  21. MEROPEN (CON.) [Concomitant]
  22. FENTANYL (CON.) [Concomitant]

REACTIONS (3)
  - CACHEXIA [None]
  - DISSEMINATED INTRAVASCULAR COAGULATION [None]
  - MALIGNANT NEOPLASM PROGRESSION [None]
